FAERS Safety Report 10093837 (Version 1)
Quarter: 2014Q2

REPORT INFORMATION
  Report Type: Spontaneous
  Country: US (occurrence: US)
  Receive Date: 20140421
  Receipt Date: 20140421
  Transmission Date: 20141212
  Serious: No
  Sender: FDA-Public Use
  Company Number: US-SA-2014SA025637

PATIENT
  Age: 74 Year
  Sex: Female

DRUGS (2)
  1. ALLEGRA [Suspect]
     Indication: URTICARIA
     Route: 048
     Dates: end: 20140225
  2. ALLEGRA [Suspect]
     Indication: HYPERSENSITIVITY
     Route: 048
     Dates: end: 20140225

REACTIONS (5)
  - Condition aggravated [Unknown]
  - Chest discomfort [Unknown]
  - Drug ineffective [Unknown]
  - Drug prescribing error [Unknown]
  - Extra dose administered [Unknown]
